FAERS Safety Report 18259219 (Version 1)
Quarter: 2020Q3

REPORT INFORMATION
  Report Type: Spontaneous
  Country: GB (occurrence: GB)
  Receive Date: 20200911
  Receipt Date: 20200911
  Transmission Date: 20201103
  Serious: No
  Sender: FDA-Public Use
  Company Number: GB-ANIPHARMA-2018-UK-000110

PATIENT
  Age: 51 Year
  Sex: Female

DRUGS (16)
  1. CHLORPHENAMINE [Concomitant]
     Active Substance: CHLORPHENIRAMINE MALEATE
     Dosage: 4 MG UNK
     Route: 048
     Dates: start: 20160627, end: 20160830
  2. TRASTUZUMAB. [Suspect]
     Active Substance: TRASTUZUMAB
     Dosage: 525 MG Q3WK / 388.5 MG Q3WK / 378 MG UNK / 388.5 MG Q3WK / 367.5 MG Q3WK / 357 MG Q3WK / 346.5 MG Q3
     Route: 042
     Dates: start: 20160510
  3. ANASTROZOLE. [Suspect]
     Active Substance: ANASTROZOLE
     Indication: BREAST CANCER METASTATIC
     Dosage: 1 MG DAILY
     Route: 048
     Dates: start: 20170127
  4. DEXAMETHASONE. [Concomitant]
     Active Substance: DEXAMETHASONE
     Dosage: 8 MG UNK
     Route: 048
     Dates: start: 20160511, end: 20160830
  5. CYCLIZINE [Concomitant]
     Active Substance: CYCLIZINE
     Dosage: 50 MG UNK
     Route: 048
     Dates: start: 20160827, end: 20160830
  6. DOCETAXEL. [Suspect]
     Active Substance: DOCETAXEL
     Dosage: 130 MG Q3WK / 120 MG Q3WK / UNK
     Route: 042
     Dates: start: 20160511
  7. PREGABALIN. [Concomitant]
     Active Substance: PREGABALIN
     Route: 065
  8. ZOMORPH [Concomitant]
     Active Substance: MORPHINE SULFATE
     Dosage: 60 MG DAILY /120 MG DAILY /20 MG DAILY
     Route: 065
     Dates: end: 20161101
  9. SEVREDOL [Concomitant]
     Active Substance: MORPHINE
     Dosage: 10 MG DAILY / UNK
     Route: 048
     Dates: start: 20161101, end: 20161102
  10. PARACETAMOL [Concomitant]
     Active Substance: ACETAMINOPHEN
     Route: 065
  11. RAMIPRIL. [Concomitant]
     Active Substance: RAMIPRIL
     Route: 065
     Dates: start: 20161005
  12. METOCLOPRAMIDE. [Concomitant]
     Active Substance: METOCLOPRAMIDE
     Dosage: 10 MG UNK
     Route: 048
     Dates: start: 20160511, end: 20160830
  13. IRON [Concomitant]
     Active Substance: IRON
     Route: 048
  14. PERTUZUMAB. [Suspect]
     Active Substance: PERTUZUMAB
     Dosage: 840 MG Q3WK / 420 MG Q3WK
     Route: 042
     Dates: start: 20160510
  15. ENOXAPARIN [Concomitant]
     Active Substance: ENOXAPARIN
     Dosage: 40 MG UNK
     Route: 058
     Dates: start: 20161101, end: 20161101
  16. CODEINE PHOSPHATE [Concomitant]
     Active Substance: CODEINE PHOSPHATE
     Dosage: 60 MG UNK
     Route: 048
     Dates: start: 20161101, end: 20161101

REACTIONS (1)
  - Haemoglobin decreased [Unknown]

NARRATIVE: CASE EVENT DATE: 20181001
